FAERS Safety Report 20960156 (Version 1)
Quarter: 2022Q2

REPORT INFORMATION
  Report Type: Spontaneous
  Country: US (occurrence: US)
  Receive Date: 20220615
  Receipt Date: 20220615
  Transmission Date: 20220721
  Serious: Yes (Other)
  Sender: FDA-Public Use
  Company Number: US-AMGEN-USASP2022098154

PATIENT
  Age: 60 Year
  Sex: Female

DRUGS (2)
  1. ROMIPLOSTIM [Suspect]
     Active Substance: ROMIPLOSTIM
     Indication: Immune thrombocytopenia
     Dosage: UNK
     Route: 065
  2. FOSTAMATINIB [Concomitant]
     Active Substance: FOSTAMATINIB
     Dosage: 100 MILLIGRAM, BID
     Route: 048

REACTIONS (1)
  - Deep vein thrombosis [Recovered/Resolved]
